FAERS Safety Report 25739560 (Version 1)
Quarter: 2025Q3

REPORT INFORMATION
  Report Type: Spontaneous
  Country: US (occurrence: US)
  Receive Date: 20250829
  Receipt Date: 20250829
  Transmission Date: 20251020
  Serious: No
  Sender: ROCHE
  Company Number: US-ROCHE-10000372412

PATIENT
  Sex: Female

DRUGS (3)
  1. XOLAIR PFS [Suspect]
     Active Substance: OMALIZUMAB
     Indication: Idiopathic urticaria
     Dosage: STRENGTH: 150 MG/ML
     Route: 058
     Dates: start: 202506
  2. XOLAIR PFS [Suspect]
     Active Substance: OMALIZUMAB
  3. HYDROCODONE [Suspect]
     Active Substance: HYDROCODONE
     Indication: Herpes zoster
     Route: 065
     Dates: start: 20250720

REACTIONS (3)
  - Herpes zoster [Unknown]
  - Pruritus [Unknown]
  - Pain [Unknown]
